FAERS Safety Report 8380970-X (Version None)
Quarter: 2012Q2

REPORT INFORMATION
  Report Type: 
  Country: None (occurrence: None)
  Receive Date: 20120523
  Receipt Date: 20120509
  Transmission Date: 20120825
  Serious: Yes (Hospitalization, Other)
  Sender: FDA-Public Use
  Company Number: DE-CELGENEUS-062-50794-10071752

PATIENT
  Age: 76 Year
  Sex: Male
  Weight: 85 kg

DRUGS (6)
  1. GENTAMICIN [Concomitant]
     Indication: NEUTROPENIA
     Route: 065
     Dates: start: 20100201
  2. VIDAZA [Suspect]
     Indication: MYELODYSPLASTIC SYNDROME
  3. VIDAZA [Suspect]
     Dosage: 75 MILLIGRAM/SQ. METER
     Route: 058
     Dates: start: 20100201, end: 20100205
  4. RED BLOOD CELLS [Concomitant]
     Indication: HAEMOCHROMATOSIS
     Route: 041
  5. CEFTAZIDIME [Concomitant]
     Indication: NEUTROPENIA
     Route: 065
     Dates: start: 20100201
  6. ZIENAM [Concomitant]
     Route: 065
     Dates: start: 20100201

REACTIONS (5)
  - BURSITIS [None]
  - NEUROPATHY PERIPHERAL [None]
  - PYODERMA GANGRENOSUM [None]
  - SEPSIS [None]
  - ACUTE MYOCARDIAL INFARCTION [None]
